FAERS Safety Report 23010009 (Version 2)
Quarter: 2023Q4

REPORT INFORMATION
  Report Type: Spontaneous
  Country: US (occurrence: US)
  Receive Date: 20230929
  Receipt Date: 20231027
  Transmission Date: 20240109
  Serious: No
  Sender: FDA-Public Use
  Company Number: US-GALDERMA-US2023013699

PATIENT

DRUGS (5)
  1. PROACTIV MD ADAPALENE ACNE TREATMENT [Suspect]
     Active Substance: ADAPALENE
     Indication: Acne
     Dosage: 1 DOSAGE FORM, QD, AS DIRECTED
     Route: 061
     Dates: start: 202308, end: 20230829
  2. Proactiv MD Ultra Gentle Cleanser [Concomitant]
     Indication: Acne
     Dosage: 1 DOSAGE FORM, 2 OR MORE TIMES A DAY
     Route: 061
     Dates: start: 202308, end: 20230829
  3. Proactiv MD Ultra Hydrating Moisturizer [Concomitant]
     Indication: Acne
     Dosage: 1 DOSAGE FORM, 2 OR MORE TIMES A DAY
     Route: 061
     Dates: start: 202308, end: 20230829
  4. Proactiv Zits Happen Patches [Concomitant]
     Indication: Acne
     Dosage: 1 DOSAGE FORM, 2 OR MORE TIMES A DAY
     Route: 061
     Dates: start: 202308, end: 20230829
  5. VYVANSE [Concomitant]
     Active Substance: LISDEXAMFETAMINE DIMESYLATE
     Indication: Product used for unknown indication
     Dosage: 1 DOSAGE FORM
     Route: 065

REACTIONS (5)
  - Acne [Recovering/Resolving]
  - Dermatitis [Recovering/Resolving]
  - Skin burning sensation [Recovering/Resolving]
  - Erythema [Recovered/Resolved]
  - Skin irritation [Recovering/Resolving]

NARRATIVE: CASE EVENT DATE: 20230801
